FAERS Safety Report 5780061-8 (Version None)
Quarter: 2008Q2

REPORT INFORMATION
  Report Type: 
  Country: None (occurrence: None)
  Receive Date: 20080620
  Receipt Date: 20080611
  Transmission Date: 20081010
  Serious: Yes (Death, Hospitalization)
  Sender: FDA-Public Use
  Company Number: US-AMGEN-US283181

PATIENT
  Sex: Male

DRUGS (15)
  1. ROMIPLOSTIM - BLINDED [Suspect]
     Indication: MYELODYSPLASTIC SYNDROME
     Route: 058
     Dates: start: 20080428, end: 20080527
  2. NEUPOGEN [Concomitant]
     Indication: MYELODYSPLASTIC SYNDROME
     Dates: start: 20080527, end: 20080529
  3. DILAUDID [Concomitant]
  4. DECITABINE [Concomitant]
     Route: 042
  5. AVAPRO [Concomitant]
     Route: 048
  6. BYETTA [Concomitant]
     Route: 058
  7. TEMAZEPAM [Concomitant]
  8. CRESTOR [Concomitant]
  9. IMDUR [Concomitant]
  10. TYLOX [Concomitant]
  11. PROTONIX [Concomitant]
  12. TOPROL-XL [Concomitant]
  13. NOVOLOG [Concomitant]
  14. COLACE [Concomitant]
  15. HYDROCODONE BITARTRATE + ACETAMINOPHEN [Concomitant]

REACTIONS (2)
  - DEHYDRATION [None]
  - PYREXIA [None]
